FAERS Safety Report 8003910-1 (Version None)
Quarter: 2011Q4

REPORT INFORMATION
  Report Type: 
  Country: None (occurrence: None)
  Receive Date: 20111222
  Receipt Date: 20111213
  Transmission Date: 20120403
  Serious: Yes (Hospitalization)
  Sender: FDA-Public Use
  Company Number: US-ASTRAZENECA-2011SE66537

PATIENT
  Age: 54 Year
  Sex: Male

DRUGS (9)
  1. ASPRIN LOW DOSE [Concomitant]
     Route: 048
  2. ACEBUTOLOL HCL [Concomitant]
     Route: 048
  3. GLIPIZIDE [Concomitant]
     Route: 048
  4. PLAVIX [Concomitant]
     Route: 048
  5. VITAMIN D [Concomitant]
     Route: 048
  6. VANDETANIB [Suspect]
     Indication: THYROID CANCER
     Route: 048
  7. VYTORIN [Concomitant]
     Dosage: 10-40 DAILY
     Route: 048
  8. NITROGLYCERIN [Concomitant]
  9. SYNTHROID [Concomitant]
     Route: 048

REACTIONS (7)
  - BLOOD PRESSURE INCREASED [None]
  - FEELING HOT [None]
  - NAUSEA [None]
  - DECREASED APPETITE [None]
  - DYSPNOEA [None]
  - PENIS DISORDER [None]
  - FATIGUE [None]
